FAERS Safety Report 7521807-8 (Version None)
Quarter: 2011Q2

REPORT INFORMATION
  Report Type: 
  Country: None (occurrence: None)
  Receive Date: 20110603
  Receipt Date: 20081115
  Transmission Date: 20111010
  Serious: Yes (Other)
  Sender: FDA-Public Use
  Company Number: US-BAYER-200838758NA

PATIENT
  Age: 80 Year
  Sex: Male
  Weight: 103 kg

DRUGS (34)
  1. LANOXIN [Concomitant]
     Dosage: 0.125 MG, QD
     Route: 048
  2. FERROUS SULFATE TAB [Concomitant]
     Dosage: 325 MG, BID
     Route: 048
  3. SUCCINYLCHOLINE CHLORIDE [Concomitant]
     Dosage: 180 MG, UNK
     Route: 042
     Dates: start: 20040826, end: 20040826
  4. ACETYLSALICYLIC ACID SRT [Concomitant]
     Dosage: UNK UNK, QD
     Route: 048
  5. IMDUR [Concomitant]
     Dosage: 180 MG, QD
     Route: 048
  6. LIPITOR [Concomitant]
     Dosage: 20 MG, QD
     Route: 048
     Dates: start: 20040101
  7. PROTAMINE SULFATE [Concomitant]
     Dosage: 340 MG, UNK
     Route: 042
     Dates: start: 20040826, end: 20040826
  8. CALCIUM CHLORIDE [Concomitant]
     Dosage: 1500 MG, UNK
     Route: 042
     Dates: start: 20040826, end: 20040826
  9. ANCEF [Concomitant]
     Dosage: 1 G, UNK
     Route: 042
     Dates: start: 20040826, end: 20040826
  10. MILRINONE [Concomitant]
     Dosage: UNK
     Route: 042
     Dates: start: 20040826
  11. FRESH FROZEN PLASMA [Concomitant]
     Dosage: 2400 ML, UNK
     Route: 042
     Dates: start: 20040826, end: 20040826
  12. ACTOS [Concomitant]
     Dosage: 30 MG, QD
     Route: 048
  13. MULTI-VITAMIN [Concomitant]
     Dosage: UNK UNK, QD
     Route: 048
  14. TUMS [CALCIUM CARBONATE] [Concomitant]
     Dosage: UNK UNK, QD
     Route: 048
  15. PRANDIN [Concomitant]
     Dosage: 5 MG WITH MEALS
     Route: 048
  16. MAGNESIUM SULFATE [Concomitant]
     Dosage: 2 G, UNK
     Route: 042
     Dates: start: 20040826, end: 20040826
  17. VISIPAQUE [Concomitant]
     Dosage: 100 ML, UNK
     Route: 042
     Dates: start: 20040819, end: 20040819
  18. HEPARIN [Concomitant]
     Dosage: 40000 U, UNK
     Route: 042
     Dates: start: 20040826, end: 20040826
  19. NATRECOR [Concomitant]
     Dosage: 0.01 MCG/KG/MIN
     Route: 042
     Dates: start: 20040826, end: 20040829
  20. LISINOPRIL [Concomitant]
     Indication: HYPERTENSION
     Dosage: 10 MG, QD
     Route: 048
     Dates: start: 20040101
  21. RED BLOOD CELLS [Concomitant]
     Dosage: 1500 ML, UNK
     Route: 042
     Dates: start: 20040826, end: 20040826
  22. PLATELETS [Concomitant]
     Dosage: 324 ML, UNK
     Route: 042
     Dates: start: 20040826, end: 20040826
  23. TRASYLOL [Suspect]
     Dosage: 200 ML (LOADING DOSE)
     Route: 042
     Dates: start: 20040826, end: 20040826
  24. COLCHICINE [Concomitant]
     Indication: GOUT
     Dosage: 0.6 MG, PRN
     Route: 048
  25. INSULIN [Concomitant]
     Dosage: 22 U, UNK
     Route: 042
     Dates: start: 20040826
  26. EPINEPHRINE [Concomitant]
     Dosage: UNK
     Route: 042
     Dates: start: 20040826
  27. PRIMACOR [Concomitant]
     Dosage: 5 MG, UNK
     Route: 042
     Dates: start: 20040826, end: 20040826
  28. ETOMIDATE [Concomitant]
     Dosage: 16 MG, UNK
     Route: 042
     Dates: start: 20040826, end: 20040826
  29. TRASYLOL [Suspect]
     Indication: AORTIC VALVE REPLACEMENT
     Dosage: 1 ML, ONCE (INITIAL DOSE)
     Route: 042
     Dates: start: 20040826, end: 20040826
  30. TRASYLOL [Suspect]
     Dosage: 50 ML/HR (INFUSION)
     Route: 042
     Dates: start: 20040826, end: 20040826
  31. BUMEX [Concomitant]
     Indication: DIURETIC THERAPY
     Dosage: 4 MG, BID
     Route: 048
  32. ZYLOPRIM [Concomitant]
     Dosage: 150 MG, QD
     Route: 048
  33. BICARBONAT SOD [Concomitant]
     Dosage: 1 AMPULE
     Route: 042
     Dates: start: 20040826, end: 20040826
  34. NEOSYNEPHRINE [Concomitant]
     Dosage: UNK
     Route: 042
     Dates: start: 20040826, end: 20040826

REACTIONS (4)
  - RENAL FAILURE [None]
  - PAIN [None]
  - UNEVALUABLE EVENT [None]
  - INJURY [None]
